FAERS Safety Report 9490678 (Version 1)
Quarter: 2013Q3

REPORT INFORMATION
  Report Type: Spontaneous
  Country: US (occurrence: None)
  Receive Date: 20130828
  Receipt Date: 20130828
  Transmission Date: 20140515
  Serious: Yes (Hospitalization)
  Sender: FDA-Public Use
  Company Number: None

PATIENT
  Age: 52 Year
  Sex: Female
  Weight: 67.5 kg

DRUGS (2)
  1. GEMCITABINE [Suspect]
     Indication: FALLOPIAN TUBE CANCER
     Dosage: 600 MG/M2 WEEKLY (3 OF 4 WKS)  IV
     Route: 042
     Dates: start: 20130625, end: 20130806
  2. PANITUMUMAB [Suspect]
     Indication: FALLOPIAN TUBE CANCER
     Dosage: 2.5 MG/M2 WEEKLY IV
     Route: 042
     Dates: start: 20130625, end: 20130813

REACTIONS (9)
  - Malignant neoplasm progression [None]
  - Small intestinal obstruction [None]
  - Pollakiuria [None]
  - Dysuria [None]
  - Headache [None]
  - Dizziness [None]
  - Heart rate increased [None]
  - Haemoglobin decreased [None]
  - Blood potassium decreased [None]
